FAERS Safety Report 10983314 (Version 3)
Quarter: 2016Q1

REPORT INFORMATION
  Report Type: Spontaneous
  Country: US (occurrence: US)
  Receive Date: 20150403
  Receipt Date: 20160315
  Transmission Date: 20160525
  Serious: No
  Sender: FDA-Public Use
  Company Number: US-PFIZER INC-2015113514

PATIENT
  Age: 54 Year
  Sex: Female

DRUGS (3)
  1. LYRICA [Suspect]
     Active Substance: PREGABALIN
     Dosage: 50 MG
  2. CHANTIX [Concomitant]
     Active Substance: VARENICLINE TARTRATE
  3. LYRICA [Suspect]
     Active Substance: PREGABALIN
     Indication: FIBROMYALGIA
     Dosage: 8 G, UNK, 2 CAPSULES
     Route: 048
     Dates: start: 201303

REACTIONS (3)
  - Muscle spasms [Recovering/Resolving]
  - Sciatica [Unknown]
  - Drug withdrawal syndrome [Recovering/Resolving]
